FAERS Safety Report 10201634 (Version 1)
Quarter: 2014Q2

REPORT INFORMATION
  Report Type: Report from Study
  Country: TN (occurrence: TN)
  Receive Date: 20140528
  Receipt Date: 20140528
  Transmission Date: 20141212
  Serious: Yes (Death)
  Sender: FDA-Public Use
  Company Number: TN-SA-2014SA065440

PATIENT
  Age: 57 Year
  Sex: Male

DRUGS (5)
  1. PLAVIX [Suspect]
     Indication: ACUTE CORONARY SYNDROME
     Route: 048
     Dates: start: 20131222, end: 201402
  2. ASPEGIC [Concomitant]
     Route: 048
  3. INSULATARD [Concomitant]
     Route: 058
  4. ACTRAPID [Concomitant]
     Route: 058
  5. CADUET [Concomitant]
     Route: 048

REACTIONS (1)
  - Renal failure [Fatal]
